FAERS Safety Report 11264607 (Version 2)
Quarter: 2015Q3

REPORT INFORMATION
  Report Type: Report from Study
  Country: AU (occurrence: AU)
  Receive Date: 20150713
  Receipt Date: 20150803
  Transmission Date: 20151125
  Serious: Yes (Death, Other)
  Sender: FDA-Public Use
  Company Number: AU-ROCHE-1605474

PATIENT

DRUGS (3)
  1. ALTEPLASE [Suspect]
     Active Substance: ALTEPLASE
     Indication: MYOCARDIAL INFARCTION
     Dosage: 10 MG OF RTPA (ALTEPLASE) FOLLOWED BY 50 MG OVER THE NEXT HOUR AND 40 MG OVER THE SUBSEQUENT 2 H.
     Route: 040
  2. HEPARIN [Suspect]
     Active Substance: HEPARIN SODIUM
     Indication: ANTICOAGULANT THERAPY
     Route: 042
  3. HEPARIN [Suspect]
     Active Substance: HEPARIN SODIUM
     Route: 042

REACTIONS (10)
  - Cerebrovascular accident [Unknown]
  - Postinfarction angina [Unknown]
  - Haematemesis [Unknown]
  - Haematochezia [Unknown]
  - Melaena [Unknown]
  - Retroperitoneal haematoma [Unknown]
  - Cardiogenic shock [Fatal]
  - Haemorrhage intracranial [Fatal]
  - Myocardial infarction [Unknown]
  - Cerebral infarction [Unknown]
